FAERS Safety Report 4874028-1 (Version None)
Quarter: 2005Q4

REPORT INFORMATION
  Report Type: 
  Country: None (occurrence: None)
  Receive Date: 20051201
  Receipt Date: 20050805
  Transmission Date: 20060501
  Serious: No
  Sender: FDA-Public Use
  Company Number: 2005PV000941

PATIENT
  Age: 48 Year
  Sex: Female
  Weight: 65.7716 kg

DRUGS (4)
  1. BYETTA [Suspect]
     Indication: DIABETES MELLITUS NON-INSULIN-DEPENDENT
     Dosage: 5 MCG; BID, SC
     Route: 058
     Dates: start: 20050721
  2. SYNTHROID [Concomitant]
  3. LIPITOR [Concomitant]
  4. STARLIX [Concomitant]

REACTIONS (5)
  - BLOOD GLUCOSE DECREASED [None]
  - FATIGUE [None]
  - GLYCOSYLATED HAEMOGLOBIN INCREASED [None]
  - NAUSEA [None]
  - SOMNOLENCE [None]
